FAERS Safety Report 9744571 (Version 1)
Quarter: 2013Q4

REPORT INFORMATION
  Report Type: Spontaneous
  Country: US (occurrence: US)
  Receive Date: 20131210
  Receipt Date: 20131210
  Transmission Date: 20140711
  Serious: Yes (Hospitalization)
  Sender: FDA-Public Use
  Company Number: US-TEVA-449236USA

PATIENT
  Sex: Female

DRUGS (2)
  1. ACTIQ [Suspect]
     Route: 002
  2. MORPHINE PUMP [Concomitant]

REACTIONS (2)
  - Adverse event [Not Recovered/Not Resolved]
  - Nausea [Not Recovered/Not Resolved]
